FAERS Safety Report 5199840-3 (Version None)
Quarter: 2006Q4

REPORT INFORMATION
  Report Type: 
  Country: None (occurrence: None)
  Receive Date: 20061229
  Receipt Date: 20061214
  Transmission Date: 20070319
  Serious: Yes (Death, Hospitalization)
  Sender: FDA-Public Use
  Company Number: GXKR2006GB08169

PATIENT
  Age: 71 Year
  Sex: Male

DRUGS (1)
  1. WARFARIN SODIUM [Suspect]
     Indication: ATRIAL FIBRILLATION

REACTIONS (21)
  - ABSCESS [None]
  - ACTIVATED PARTIAL THROMBOPLASTIN TIME PROLONGED [None]
  - BLOOD BILIRUBIN INCREASED [None]
  - CONTUSION [None]
  - DYSPNOEA [None]
  - HAEMATOMA [None]
  - HAEMORRHAGE [None]
  - HAEMOTHORAX [None]
  - HYPOTENSION [None]
  - HYPOXIA [None]
  - MACROCYTOSIS [None]
  - MULTI-ORGAN FAILURE [None]
  - PAIN [None]
  - POLYCHROMASIA [None]
  - PROTHROMBIN TIME PROLONGED [None]
  - PURULENCE [None]
  - PYREXIA [None]
  - RED BLOOD CELL ABNORMALITY [None]
  - RENAL FAILURE [None]
  - SWELLING [None]
  - TACHYCARDIA [None]
